FAERS Safety Report 18744604 (Version 2)
Quarter: 2021Q1

REPORT INFORMATION
  Report Type: Report from Study
  Country: GB (occurrence: GB)
  Receive Date: 20210115
  Receipt Date: 20210124
  Transmission Date: 20210419
  Serious: Yes (Other)
  Sender: FDA-Public Use
  Company Number: GB-UCBSA-2020047258

PATIENT
  Age: 31 Year
  Sex: Female

DRUGS (2)
  1. CERTOLIZUMAB PEGOL RA AVA [Suspect]
     Active Substance: CERTOLIZUMAB PEGOL
     Dosage: 200 MILLIGRAM, EV 2 WEEKS(QOW)
     Route: 058
     Dates: start: 2020, end: 20201224
  2. CERTOLIZUMAB PEGOL RA AVA [Suspect]
     Active Substance: CERTOLIZUMAB PEGOL
     Indication: RHEUMATOID ARTHRITIS
     Dosage: 400 MILLIGRAM, EV 2 WEEKS(QOW)
     Route: 058
     Dates: start: 20201112, end: 2020

REACTIONS (5)
  - Injection site discolouration [Recovering/Resolving]
  - Dizziness [Not Recovered/Not Resolved]
  - Rhinorrhoea [Recovering/Resolving]
  - Ear pain [Not Recovered/Not Resolved]
  - Tachycardia [Not Recovered/Not Resolved]

NARRATIVE: CASE EVENT DATE: 20201112
